FAERS Safety Report 20318507 (Version 1)
Quarter: 2022Q1

REPORT INFORMATION
  Report Type: Report from Study
  Country: BR (occurrence: BR)
  Receive Date: 20220110
  Receipt Date: 20220110
  Transmission Date: 20220423
  Serious: Yes (Hospitalization, Other)
  Sender: FDA-Public Use
  Company Number: BR-NOVARTISPH-NVSC2020BR240186

PATIENT
  Age: 61 Year
  Sex: Female

DRUGS (5)
  1. COSENTYX [Suspect]
     Active Substance: SECUKINUMAB
     Indication: Psoriatic arthropathy
     Dosage: UNK, QMO
     Route: 065
     Dates: start: 201810
  2. COSENTYX [Suspect]
     Active Substance: SECUKINUMAB
     Dosage: 300 MG
     Route: 065
     Dates: start: 20181024
  3. COSENTYX [Suspect]
     Active Substance: SECUKINUMAB
     Dosage: UNK
     Route: 065
     Dates: start: 202010
  4. COSENTYX [Suspect]
     Active Substance: SECUKINUMAB
     Dosage: UNK
     Route: 065
     Dates: start: 20200726
  5. COSENTYX [Suspect]
     Active Substance: SECUKINUMAB
     Dosage: UNK
     Route: 065
     Dates: start: 20211228

REACTIONS (25)
  - Panniculitis [Recovered/Resolved]
  - Pelvic pain [Recovering/Resolving]
  - Immunodeficiency [Unknown]
  - Inflammation [Unknown]
  - Oropharyngeal discomfort [Recovered/Resolved]
  - Pain [Recovered/Resolved]
  - Headache [Recovered/Resolved]
  - Emotional distress [Recovered/Resolved]
  - Immune system disorder [Recovered/Resolved]
  - COVID-19 [Recovering/Resolving]
  - Decreased immune responsiveness [Recovering/Resolving]
  - Bladder disorder [Recovering/Resolving]
  - Discomfort [Recovering/Resolving]
  - Bladder discomfort [Recovering/Resolving]
  - Anxiety [Recovering/Resolving]
  - Bladder pain [Recovering/Resolving]
  - Arthralgia [Recovering/Resolving]
  - Spinal pain [Recovering/Resolving]
  - Skin discolouration [Recovering/Resolving]
  - Hyperhidrosis [Recovering/Resolving]
  - Tachycardia [Recovering/Resolving]
  - Oral herpes [Not Recovered/Not Resolved]
  - Skin lesion [Recovered/Resolved]
  - Cough [Recovered/Resolved]
  - Psoriasis [Recovered/Resolved]

NARRATIVE: CASE EVENT DATE: 20200501
